FAERS Safety Report 7610547-2 (Version None)
Quarter: 2011Q3

REPORT INFORMATION
  Report Type: 
  Country: None (occurrence: None)
  Receive Date: 20110707
  Receipt Date: 20110624
  Transmission Date: 20111222
  Serious: Yes (Hospitalization)
  Sender: FDA-Public Use
  Company Number: 1000020562

PATIENT
  Age: 81 Year
  Sex: Female

DRUGS (11)
  1. LERCAN (LERCANIDIPINE HYDROCHLORIDE) (LERCANIDIPINE HYDROCHLORIDE) [Concomitant]
  2. ESCITALOPRAM [Suspect]
     Dosage: 1 DOSAGE FORM (1 DOSAGE FORMS, 1 IN 1 D),ORAL
     Route: 048
  3. LANTUS (INSULIN GLARGINE)(INSULIN GLARGINE) [Concomitant]
  4. AVLOCARDYL (PROPRANOLOL)(PROPRANOLOL) [Concomitant]
  5. CORTANCYL (PREDNISONE) (20 MILLIGRAM) (PREDNISONE) [Concomitant]
  6. PREVISCAN (FLUINDIONE)(20 MILLIGRAM) [Suspect]
     Dosage: LONG-STANDING TREATMENT - 03/16/2011
  7. APROVEL ( IRBESARTAN) (150 MILLIGRAM) ( IRBESARTAN) [Concomitant]
  8. MOPRAL (OMEPRAZOLE) (OMEPRAZOLE) [Concomitant]
  9. CEFTRIAXONE SODIUM [Suspect]
     Indication: LUNG INFECTION
     Dosage: INTRAVENOUS (NOT OTHERWISE SPECIFIED)
     Route: 042
     Dates: start: 20110315, end: 20110316
  10. HUMALOG (INSULIN) (INSULIN) [Concomitant]
  11. FOSAVANCE (ALENDRONIC ACID, COLECALCIFEROL)(ALENDRONIC ACID, COLECALCI [Concomitant]

REACTIONS (5)
  - GASTROINTESTINAL HAEMORRHAGE [None]
  - HAEMOGLOBIN DECREASED [None]
  - DRUG INTERACTION [None]
  - CEREBROVASCULAR ACCIDENT [None]
  - INTERNATIONAL NORMALISED RATIO INCREASED [None]
